FAERS Safety Report 9445414 (Version 4)
Quarter: 2014Q2

REPORT INFORMATION
  Report Type: Spontaneous
  Country: SZ (occurrence: None)
  Receive Date: 20130729
  Receipt Date: 20130927
  Transmission Date: 20141212
  Serious: Yes (Other)
  Sender: FDA-Public Use
  Company Number: 2012032717

PATIENT
  Age: 57 Year
  Sex: Female

DRUGS (6)
  1. PRIVIGEN (IMMUNE GLOBULIN INTRAVENOUS (HUMAN) 10% LIQUID) [Suspect]
     Indication: POLYNEUROPATHY
     Dosage: 30 G, START DATE: 2006; 1 PER 3 CYCLIC; EVERY 6 WEEKS FOR 3 DAYS;  30 G/D (=0.66 G/KG/D), INTRAVENOUOS DRIP
     Route: 041
     Dates: end: 20120606
  2. HEPARIN (HEPARIN) [Suspect]
  3. ESTRADIOL (ESTRADIOL) (GEL) [Concomitant]
  4. COLECALCIFEROL (COLECALCIFEROL) [Concomitant]
  5. CALCIUM CARBONATE (CALCIUM CARBONATE) [Concomitant]
  6. NORETHISTERONE ACETATE (NORETHISTERONE ACETATE) [Concomitant]

REACTIONS (5)
  - Jaundice [None]
  - Blood bilirubin increased [None]
  - Alopecia [None]
  - Off label use [None]
  - Condition aggravated [None]
